FAERS Safety Report 6197381-8 (Version None)
Quarter: 2009Q2

REPORT INFORMATION
  Report Type: 
  Country: None (occurrence: None)
  Receive Date: 20090518
  Receipt Date: 20090513
  Transmission Date: 20091009
  Serious: Yes (Other)
  Sender: FDA-Public Use
  Company Number: SPV1-2009-00935

PATIENT

DRUGS (1)
  1. VYVANSE [Suspect]
     Dates: start: 20090101

REACTIONS (1)
  - SUICIDE ATTEMPT [None]
